FAERS Safety Report 26107127 (Version 1)
Quarter: 2025Q4

REPORT INFORMATION
  Report Type: Report from Study
  Country: US (occurrence: US)
  Receive Date: 20251201
  Receipt Date: 20251201
  Transmission Date: 20260118
  Serious: Yes (Death, Other)
  Sender: ACADIA PHARMACEUTICALS
  Company Number: US-ACADIA PHARMACEUTICALS INC.-ACA-2025-PIM-012711

PATIENT
  Age: 80 Year
  Sex: Male

DRUGS (15)
  1. NUPLAZID [Suspect]
     Active Substance: PIMAVANSERIN TARTRATE
     Indication: Hallucination
     Dosage: 34 MILLIGRAM, QD
     Route: 048
     Dates: start: 20210816
  2. NUPLAZID [Suspect]
     Active Substance: PIMAVANSERIN TARTRATE
     Indication: Parkinson^s disease
  3. QUETIAPINE [Concomitant]
     Active Substance: QUETIAPINE
  4. ATORVASTATIN [Concomitant]
     Active Substance: ATORVASTATIN
  5. CELECOXIB [Concomitant]
     Active Substance: CELECOXIB
  6. FERROUS SULFATE [Concomitant]
     Active Substance: FERROUS SULFATE
  7. CLOZAPINE [Concomitant]
     Active Substance: CLOZAPINE
  8. DONEPEZIL [Concomitant]
     Active Substance: DONEPEZIL
  9. MELATONIN [Concomitant]
     Active Substance: MELATONIN
  10. ELIQUIS [Concomitant]
     Active Substance: APIXABAN
  11. FINASTERIDE [Concomitant]
     Active Substance: FINASTERIDE
  12. SYNJARDY [Concomitant]
     Active Substance: EMPAGLIFLOZIN\METFORMIN HYDROCHLORIDE
  13. ADULT MULTIVITAMIN [Concomitant]
  14. MIDODRINE [Concomitant]
     Active Substance: MIDODRINE
  15. RYTARY [Concomitant]
     Active Substance: CARBIDOPA\LEVODOPA
     Dosage: ER 48.75

REACTIONS (1)
  - Death [Fatal]

NARRATIVE: CASE EVENT DATE: 20251025
